FAERS Safety Report 19510594 (Version 1)
Quarter: 2021Q3

REPORT INFORMATION
  Report Type: Spontaneous
  Country: CN (occurrence: CN)
  Receive Date: 20210708
  Receipt Date: 20210708
  Transmission Date: 20211014
  Serious: Yes (Other)
  Sender: FDA-Public Use
  Company Number: CN-ASTRAZENECA-2021A594733

PATIENT
  Age: 57 Year
  Sex: Male
  Weight: 55 kg

DRUGS (2)
  1. ESOMEPRAZOLE MAGNESIUM. [Suspect]
     Active Substance: ESOMEPRAZOLE MAGNESIUM
     Indication: ACID BASE BALANCE ABNORMAL
     Route: 048
     Dates: start: 20210507, end: 20210521
  2. AMOXICILLIN. [Concomitant]
     Active Substance: AMOXICILLIN
     Indication: INFECTION
     Route: 048
     Dates: start: 20210507, end: 20210521

REACTIONS (7)
  - Pyrexia [Recovered/Resolved]
  - Swelling of eyelid [Recovered/Resolved]
  - Swelling [Recovered/Resolved]
  - Skin swelling [Recovered/Resolved]
  - Chills [Unknown]
  - Swelling face [Recovered/Resolved]
  - Urticaria [Recovered/Resolved]

NARRATIVE: CASE EVENT DATE: 20210521
